FAERS Safety Report 25383614 (Version 1)
Quarter: 2025Q2

REPORT INFORMATION
  Report Type: Spontaneous
  Country: HU (occurrence: HU)
  Receive Date: 20250602
  Receipt Date: 20250602
  Transmission Date: 20250716
  Serious: Yes (Other)
  Sender: ROCHE
  Company Number: HU-ROCHE-10000293423

PATIENT
  Age: 35 Year
  Sex: Male

DRUGS (1)
  1. OCREVUS [Suspect]
     Active Substance: OCRELIZUMAB
     Indication: Multiple sclerosis
     Route: 050
     Dates: start: 2022

REACTIONS (4)
  - Vision blurred [Unknown]
  - Dry eye [Unknown]
  - Fatigue [Unknown]
  - Paraesthesia [Unknown]
